FAERS Safety Report 13737314 (Version 2)
Quarter: 2019Q3

REPORT INFORMATION
  Report Type: Report from Study
  Country: JP (occurrence: JP)
  Receive Date: 20170710
  Receipt Date: 20190821
  Transmission Date: 20191004
  Serious: Yes (Death, Hospitalization, Other)
  Sender: FDA-Public Use
  Company Number: JP-JNJFOC-20170705454

PATIENT
  Age: 76 Year
  Sex: Male
  Weight: 56.96 kg

DRUGS (9)
  1. RIVAROXABAN [Suspect]
     Active Substance: RIVAROXABAN
     Route: 048
     Dates: start: 20150711, end: 20160526
  2. DOCETAXEL. [Suspect]
     Active Substance: DOCETAXEL
     Indication: GASTRIC CANCER
     Route: 065
  3. REZALTAS [Concomitant]
     Active Substance: AZELNIDIPINE\OLMESARTAN MEDOXOMIL
     Route: 048
     Dates: end: 20160427
  4. MAGMITT [Concomitant]
     Active Substance: MAGNESIUM OXIDE
     Route: 048
     Dates: end: 20141023
  5. RIVAROXABAN [Suspect]
     Active Substance: RIVAROXABAN
     Indication: CEREBROVASCULAR ACCIDENT PROPHYLAXIS
     Dosage: 10 MG, QD
     Route: 048
     Dates: start: 20140619, end: 20150710
  6. CISPLATIN. [Suspect]
     Active Substance: CISPLATIN
     Indication: GASTRIC CANCER
     Route: 065
  7. OLMETEC [Concomitant]
     Active Substance: OLMESARTAN MEDOXOMIL
     Route: 048
     Dates: end: 20160316
  8. JANUVIA [Concomitant]
     Active Substance: SITAGLIPTIN PHOSPHATE
     Route: 048
     Dates: end: 20160511
  9. TS-1 [Suspect]
     Active Substance: GIMERACIL\OTERACIL\TEGAFUR
     Indication: GASTRIC CANCER
     Route: 048

REACTIONS (5)
  - Blood loss anaemia [Not Recovered/Not Resolved]
  - Febrile neutropenia [Recovered/Resolved]
  - Tumour haemorrhage [Not Recovered/Not Resolved]
  - Platelet count decreased [Recovered/Resolved]
  - Gastric cancer [Fatal]

NARRATIVE: CASE EVENT DATE: 20150702
